FAERS Safety Report 9073973 (Version 1)
Quarter: 2013Q1

REPORT INFORMATION
  Report Type: Report from Study
  Country: US (occurrence: US)
  Receive Date: 20130129
  Receipt Date: 20130129
  Transmission Date: 20140127
  Serious: No
  Sender: FDA-Public Use
  Company Number: US-ABBOTT-12P-163-0910439-00

PATIENT
  Age: 41 Year
  Sex: Female

DRUGS (5)
  1. HUMIRA 40 MG/0.8 ML PEN [Suspect]
     Indication: PSORIATIC ARTHROPATHY
     Route: 058
     Dates: start: 201111, end: 20120309
  2. METHOTREXATE [Concomitant]
     Indication: PRODUCT USED FOR UNKNOWN INDICATION
     Dosage: EVERY WEEK
  3. FOLIC ACID [Concomitant]
     Indication: PRODUCT USED FOR UNKNOWN INDICATION
     Dosage: 3 MG EVERY DAY
  4. TRAMADOL [Concomitant]
     Indication: PAIN
  5. NAPROXEN [Concomitant]
     Indication: PAIN

REACTIONS (8)
  - Gait disturbance [Recovering/Resolving]
  - Sensory disturbance [Not Recovered/Not Resolved]
  - Injection site bruising [Recovering/Resolving]
  - Injection site erythema [Recovering/Resolving]
  - Paraesthesia [Recovering/Resolving]
  - Myalgia [Recovered/Resolved]
  - Myalgia [Recovering/Resolving]
  - Paraesthesia [Not Recovered/Not Resolved]
